FAERS Safety Report 8005681-1 (Version None)
Quarter: 2011Q4

REPORT INFORMATION
  Report Type: 
  Country: None (occurrence: None)
  Receive Date: 20111223
  Receipt Date: 20111214
  Transmission Date: 20120403
  Serious: Yes (Disabling)
  Sender: FDA-Public Use
  Company Number: CH-ROCHE-1024062

PATIENT
  Age: 52 Year
  Sex: Female

DRUGS (5)
  1. ONBREZ [Concomitant]
  2. FLUTICASONE PROPIONATE/SALMETEROL [Concomitant]
  3. XOLAIR [Suspect]
     Indication: ASTHMA
     Dosage: VIAL, BIW, 3 TIMES
     Route: 058
     Dates: start: 20100101, end: 20110701
  4. SALMETEROL [Concomitant]
  5. ALVESCO [Concomitant]

REACTIONS (2)
  - INJECTION SITE PRURITUS [None]
  - INCORRECT DOSE ADMINISTERED [None]
